FAERS Safety Report 8276565-9 (Version None)
Quarter: 2012Q2

REPORT INFORMATION
  Report Type: 
  Country: None (occurrence: None)
  Receive Date: 20120412
  Receipt Date: 20120406
  Transmission Date: 20120825
  Serious: No
  Sender: FDA-Public Use
  Company Number: US-BAYER-2012-035193

PATIENT
  Age: 42 Year
  Sex: Female
  Weight: 113 kg

DRUGS (3)
  1. ALEVE (CAPLET) [Suspect]
     Indication: TOOTHACHE
     Dosage: 1-2 TABLET
     Route: 048
     Dates: start: 20120405
  2. SUDAFED 12 HOUR [Concomitant]
  3. ATENOLOL [Concomitant]

REACTIONS (1)
  - TOOTHACHE [None]
